FAERS Safety Report 18971095 (Version 1)
Quarter: 2021Q1

REPORT INFORMATION
  Report Type: Other
  Country: US (occurrence: US)
  Receive Date: 20210305
  Receipt Date: 20210305
  Transmission Date: 20210420
  Serious: Yes (Hospitalization)
  Sender: FDA-Public Use
  Company Number: US-ROCHE-2755020

PATIENT
  Sex: Female

DRUGS (2)
  1. OCREVUS [Suspect]
     Active Substance: OCRELIZUMAB
     Indication: MULTIPLE SCLEROSIS
  2. OCREVUS [Suspect]
     Active Substance: OCRELIZUMAB
     Indication: RELAPSING MULTIPLE SCLEROSIS
     Dosage: 300 MG ON DAY 1 AND 15, THEN 600 MG ONCE IN 6 MONTHS?ON /NOV/2017, 10/JAN/2019, 19/JUN/2019, 25/NOV/
     Route: 042
     Dates: start: 2018

REACTIONS (5)
  - Tremor [Unknown]
  - Seizure [Recovered/Resolved]
  - Gait inability [Unknown]
  - Off label use [Unknown]
  - Amnesia [Unknown]
